FAERS Safety Report 8064922 (Version 3)
Quarter: 2013Q4

REPORT INFORMATION
  Report Type: Spontaneous
  Country: US (occurrence: US)
  Receive Date: 20110802
  Receipt Date: 20131218
  Transmission Date: 20140711
  Serious: Yes (Hospitalization)
  Sender: FDA-Public Use
  Company Number: US-GLAXOSMITHKLINE-A0871772A

PATIENT
  Age: 32 Year
  Sex: Male

DRUGS (1)
  1. AVANDIA [Suspect]
     Indication: TYPE 2 DIABETES MELLITUS
     Dosage: 4MG PER DAY
     Route: 048
     Dates: start: 200110, end: 201008

REACTIONS (3)
  - Myocardial infarction [Recovering/Resolving]
  - Cerebrovascular accident [Unknown]
  - Cardiac failure congestive [Unknown]
